FAERS Safety Report 20065662 (Version 1)
Quarter: 2021Q4

REPORT INFORMATION
  Report Type: Report from Study
  Country: EG (occurrence: EG)
  Receive Date: 20211113
  Receipt Date: 20211113
  Transmission Date: 20220304
  Serious: Yes (Other)
  Sender: FDA-Public Use
  Company Number: EG-NOVARTISPH-NVSC2021EG255008

PATIENT
  Age: 41 Year
  Sex: Male

DRUGS (7)
  1. ENTRESTO [Suspect]
     Active Substance: SACUBITRIL\VALSARTAN
     Indication: Cardiac failure
     Dosage: 50 MG, QD
     Route: 048
     Dates: start: 20201001
  2. CARVEDILOL [Concomitant]
     Active Substance: CARVEDILOL
     Indication: Cardiac failure
     Dosage: 1 DF, TID
     Route: 048
     Dates: start: 20170501
  3. CARVEDILOL [Concomitant]
     Active Substance: CARVEDILOL
     Indication: Blood pressure management
  4. EXAMIDE [Concomitant]
     Indication: Diuretic therapy
     Dosage: 1 DF, QD
     Route: 065
     Dates: start: 20170501
  5. CORTISONE [Concomitant]
     Active Substance: CORTISONE
     Indication: Prophylaxis
     Dosage: 1 DF, BID
     Route: 065
     Dates: start: 20210601, end: 20210715
  6. C RETARD [Concomitant]
     Indication: Prophylaxis
     Dosage: UNK
     Route: 065
     Dates: start: 20210601, end: 20210715
  7. ZINC [Concomitant]
     Active Substance: ZINC
     Indication: Prophylaxis
     Dosage: UNK
     Route: 065
     Dates: start: 20210601, end: 20210715

REACTIONS (7)
  - Suspected COVID-19 [Recovered/Resolved]
  - Nasopharyngitis [Recovered/Resolved]
  - Inappropriate schedule of product administration [Unknown]
  - Blood glucose increased [Recovering/Resolving]
  - Dry mouth [Recovered/Resolved]
  - Vision blurred [Recovered/Resolved]
  - Balance disorder [Recovered/Resolved]

NARRATIVE: CASE EVENT DATE: 20201001
